FAERS Safety Report 23698033 (Version 7)
Quarter: 2025Q2

REPORT INFORMATION
  Report Type: Spontaneous
  Country: PT (occurrence: PT)
  Receive Date: 20240402
  Receipt Date: 20250519
  Transmission Date: 20250717
  Serious: Yes (Death, Other)
  Sender: NOVARTIS
  Company Number: PT-AMGEN-PRTSP2024060177

PATIENT
  Age: 52 Year
  Sex: Female
  Weight: 58 kg

DRUGS (182)
  1. FILGRASTIM [Suspect]
     Active Substance: FILGRASTIM
     Indication: Product used for unknown indication
     Route: 065
     Dates: start: 20221230, end: 20221230
  2. TYKERB [Suspect]
     Active Substance: LAPATINIB DITOSYLATE
     Indication: HER2 positive breast cancer
     Dosage: 1000 MG, QD
     Route: 048
     Dates: start: 20190207, end: 20190723
  3. VINORELBINE [Suspect]
     Active Substance: VINORELBINE TARTRATE
     Indication: HER2 positive breast cancer
     Dosage: UNK, QW, MOST RECENT DOSE: 01/OCT/2020
     Route: 042
     Dates: start: 20200310, end: 20201001
  4. PACLITAXEL [Suspect]
     Active Substance: PACLITAXEL
     Indication: HER2 positive breast cancer
     Dosage: UNK, QW, TAXOL
     Route: 042
     Dates: start: 20190813, end: 20200211
  5. PACLITAXEL [Suspect]
     Active Substance: PACLITAXEL
     Dosage: UNK, Q3W (MOST RECENT DOSE: 30/DEC/2022)
     Route: 042
     Dates: start: 20221214
  6. PACLITAXEL [Suspect]
     Active Substance: PACLITAXEL
     Dosage: UNK, Q3W (MOST RECENT DOSE: 03/JAN/2021)
     Route: 042
     Dates: start: 20201013, end: 20210103
  7. FLUOROURACIL [Suspect]
     Active Substance: FLUOROURACIL
     Indication: HER2 positive breast cancer
     Route: 042
     Dates: start: 20201013, end: 20210103
  8. FLUOROURACIL [Suspect]
     Active Substance: FLUOROURACIL
     Route: 042
     Dates: start: 20201013
  9. CARBOPLATIN [Suspect]
     Active Substance: CARBOPLATIN
     Indication: HER2 positive breast cancer
     Dosage: UNK, Q3W (PARAPLATIN)
     Route: 042
     Dates: start: 20221214, end: 20221230
  10. CARBOPLATIN [Suspect]
     Active Substance: CARBOPLATIN
     Dosage: UNK UNK, Q3W (MOST RECENT DOSE: 30/DEC/2022)
     Route: 042
     Dates: start: 20221214, end: 20221230
  11. DOCETAXEL [Suspect]
     Active Substance: DOCETAXEL
     Indication: HER2 positive breast cancer
     Dosage: UNK, QW, (3 WEEKS), TAXOTERE SOLUTION FOR INJECTION)
     Route: 042
     Dates: start: 20210104, end: 20210629
  12. GEMCITABINE [Suspect]
     Active Substance: GEMCITABINE
     Indication: HER2 positive breast cancer
     Dosage: UNK, Q3W ((MOST RECENT DOSE: 30/DEC/2022), GEMZAR )
     Route: 042
     Dates: start: 20221214, end: 20221230
  13. GEMCITABINE [Suspect]
     Active Substance: GEMCITABINE
     Route: 042
     Dates: start: 20221230
  14. METHOTREXATE [Suspect]
     Active Substance: METHOTREXATE
     Indication: HER2 positive breast cancer
     Route: 042
     Dates: start: 20201013, end: 20210103
  15. CAPECITABINE [Suspect]
     Active Substance: CAPECITABINE
     Indication: HER2 positive breast cancer
     Dosage: 1300 UG, BID (2600 UG, QD)
     Route: 048
     Dates: start: 20181115, end: 20181206
  16. CAPECITABINE [Suspect]
     Active Substance: CAPECITABINE
     Dosage: 1800 UG, BID, 3600 UG, QD, 86 DAYS
     Route: 065
     Dates: start: 20180529, end: 20180529
  17. CAPECITABINE [Suspect]
     Active Substance: CAPECITABINE
     Dosage: 1500 UG, BID, 3000 UG, QD, 86 DAYS
     Route: 065
     Dates: start: 20180821, end: 20180821
  18. CAPECITABINE [Suspect]
     Active Substance: CAPECITABINE
     Dosage: 1500 UG, BID (3000 UG, QD)
     Route: 048
     Dates: start: 20180821, end: 20181114
  19. TREXALL [Suspect]
     Active Substance: METHOTREXATE SODIUM
     Indication: HER2 positive breast cancer
     Dosage: UNK, TIW
     Route: 042
     Dates: start: 20201013, end: 20210103
  20. NAVELBINE [Suspect]
     Active Substance: VINORELBINE TARTRATE
     Indication: HER2 positive breast cancer
     Dosage: UNK, QW
     Route: 042
     Dates: start: 20200310, end: 20201001
  21. KADCYLA [Suspect]
     Active Substance: ADO-TRASTUZUMAB EMTANSINE
     Indication: HER2 positive breast cancer
     Dosage: 190.8 MILLIGRAM (3 WEEKS)
     Route: 042
     Dates: start: 20180417, end: 20180508
  22. KADCYLA [Suspect]
     Active Substance: ADO-TRASTUZUMAB EMTANSINE
     Dosage: 190.8 MILLIGRAM (3 WEEKS)
     Route: 042
     Dates: start: 20170614, end: 20180308
  23. CYTOXAN [Suspect]
     Active Substance: CYCLOPHOSPHAMIDE
     Indication: HER2 positive breast cancer
     Route: 042
     Dates: start: 20201013, end: 20210103
  24. XELODA [Suspect]
     Active Substance: CAPECITABINE
     Indication: Product used for unknown indication
     Dosage: 1500 MG, QD
     Route: 048
     Dates: start: 20180821, end: 20181114
  25. XELODA [Suspect]
     Active Substance: CAPECITABINE
     Dosage: 1300 MG, QD
     Route: 048
     Dates: start: 20181115, end: 20181206
  26. XELODA [Suspect]
     Active Substance: CAPECITABINE
     Dosage: 1800 MG, QD
     Route: 048
     Dates: start: 20180529, end: 20180820
  27. PARAPLATIN [Suspect]
     Active Substance: CARBOPLATIN
     Indication: HER2 positive breast cancer
     Dosage: UNK, TIW
     Route: 042
     Dates: start: 20221214, end: 20221230
  28. TAXOTERE [Suspect]
     Active Substance: DOCETAXEL
     Indication: HER2 positive breast cancer
     Dosage: UNK, TIW
     Route: 042
     Dates: start: 20210104, end: 20210629
  29. HERCEPTIN [Suspect]
     Active Substance: TRASTUZUMAB
     Indication: HER2 positive breast cancer
     Route: 058
     Dates: start: 20180529, end: 20190729
  30. HERCEPTIN [Suspect]
     Active Substance: TRASTUZUMAB
     Dosage: UNK, Q3W
     Route: 058
     Dates: start: 20180529
  31. HERCEPTIN [Suspect]
     Active Substance: TRASTUZUMAB
     Dosage: UNK (3 WEEKS)
     Route: 042
     Dates: start: 20221214, end: 20221230
  32. HERCEPTIN [Suspect]
     Active Substance: TRASTUZUMAB
     Dosage: UNK (3 WEEKS)
     Route: 065
     Dates: start: 2019, end: 20190729
  33. HERCEPTIN [Suspect]
     Active Substance: TRASTUZUMAB
     Route: 058
     Dates: start: 20190117
  34. HERCEPTIN [Suspect]
     Active Substance: TRASTUZUMAB
     Dosage: UNK, Q3W
     Route: 065
     Dates: start: 20180529, end: 20190117
  35. GEMZAR [Suspect]
     Active Substance: GEMCITABINE HYDROCHLORIDE
     Indication: HER2 positive breast cancer
     Route: 065
     Dates: start: 20221214, end: 20221230
  36. ADRUCIL [Suspect]
     Active Substance: FLUOROURACIL
     Indication: HER2 positive breast cancer
     Dosage: UNK (3 WEEKS), MOST RECENT DOSE: 03/JAN/2021
     Route: 042
     Dates: start: 20201013
  37. ADRUCIL [Suspect]
     Active Substance: FLUOROURACIL
     Dosage: UNK, QW
     Route: 042
     Dates: start: 20200310
  38. TAXOL [Suspect]
     Active Substance: PACLITAXEL
     Indication: HER2 positive breast cancer
     Dosage: UNK, QW
     Route: 042
     Dates: start: 20190813, end: 20200211
  39. FAM-TRASTUZUMAB DERUXTECAN-NXKI [Suspect]
     Active Substance: FAM-TRASTUZUMAB DERUXTECAN-NXKI
     Indication: HER2 positive breast cancer
     Dosage: 190.8 UG, Q3W (18/MAR/2018)
     Route: 065
     Dates: start: 20170614
  40. FAM-TRASTUZUMAB DERUXTECAN-NXKI [Suspect]
     Active Substance: FAM-TRASTUZUMAB DERUXTECAN-NXKI
     Route: 065
     Dates: start: 20190308
  41. FAM-TRASTUZUMAB DERUXTECAN-NXKI [Suspect]
     Active Substance: FAM-TRASTUZUMAB DERUXTECAN-NXKI
     Dosage: UNK, Q3W
     Route: 065
     Dates: start: 20210714, end: 20221124
  42. FAM-TRASTUZUMAB DERUXTECAN-NXKI [Suspect]
     Active Substance: FAM-TRASTUZUMAB DERUXTECAN-NXKI
     Route: 065
     Dates: start: 20190308, end: 20190308
  43. FLUOROURACIL [Suspect]
     Active Substance: FLUOROURACIL
     Indication: HER2 positive breast cancer
     Dosage: UNK, TIW
     Route: 042
     Dates: start: 20201013, end: 20210103
  44. FLUOROPLEX [Suspect]
     Active Substance: FLUOROURACIL
     Indication: HER2 positive breast cancer
     Route: 042
     Dates: start: 20201013, end: 20210103
  45. PERJETA [Suspect]
     Active Substance: PERTUZUMAB
     Indication: HER2 positive breast cancer
     Dosage: UNK, Q3W
     Route: 042
     Dates: start: 20190903, end: 20200218
  46. PERJETA [Suspect]
     Active Substance: PERTUZUMAB
     Dosage: UNK (3 WEEKS)
     Route: 042
     Dates: start: 20190903
  47. FLUOROURACIL [Suspect]
     Active Substance: FLUOROURACIL
     Indication: HER2 positive breast cancer
     Route: 042
     Dates: start: 20201013, end: 20210103
  48. FLUOROURACIL [Suspect]
     Active Substance: FLUOROURACIL
     Route: 042
     Dates: start: 20201013
  49. EFUDEX [Suspect]
     Active Substance: FLUOROURACIL
     Indication: HER2 positive breast cancer
     Dosage: UNK, Q3W(MOST RECENT DOSE: 03/JAN/2021)
     Route: 042
     Dates: start: 20201013, end: 20210103
  50. METOCLOPRAMIDE HYDROCHLORIDE [Concomitant]
     Active Substance: METOCLOPRAMIDE HYDROCHLORIDE
     Indication: Product used for unknown indication
     Route: 065
     Dates: start: 20221230
  51. IVABRADINE [Concomitant]
     Active Substance: IVABRADINE
     Indication: Ejection fraction decreased
     Route: 065
     Dates: start: 20180308, end: 20221230
  52. IVABRADINE [Concomitant]
     Active Substance: IVABRADINE
     Route: 065
     Dates: start: 20180308, end: 20221230
  53. IVABRADINE [Concomitant]
     Active Substance: IVABRADINE
     Route: 065
     Dates: start: 20180308, end: 20221230
  54. IVABRADINE [Concomitant]
     Active Substance: IVABRADINE
     Route: 065
     Dates: start: 20180308, end: 20221230
  55. IVABRADINE [Concomitant]
     Active Substance: IVABRADINE
     Route: 065
     Dates: start: 20180308, end: 20221230
  56. IVABRADINE [Concomitant]
     Active Substance: IVABRADINE
     Route: 065
     Dates: start: 20180308, end: 20221230
  57. FERRIC CARBOXYMALTOSE [Concomitant]
     Active Substance: FERRIC CARBOXYMALTOSE
     Indication: Product used for unknown indication
     Route: 065
  58. FERRIC CARBOXYMALTOSE [Concomitant]
     Active Substance: FERRIC CARBOXYMALTOSE
     Route: 065
  59. FERRIC CARBOXYMALTOSE [Concomitant]
     Active Substance: FERRIC CARBOXYMALTOSE
     Route: 065
  60. FERRIC CARBOXYMALTOSE [Concomitant]
     Active Substance: FERRIC CARBOXYMALTOSE
     Route: 065
  61. FERRIC CARBOXYMALTOSE [Concomitant]
     Active Substance: FERRIC CARBOXYMALTOSE
     Route: 065
  62. FERRIC CARBOXYMALTOSE [Concomitant]
     Active Substance: FERRIC CARBOXYMALTOSE
     Route: 065
  63. ZOLEDRONIC ACID [Concomitant]
     Active Substance: ZOLEDRONIC ACID
     Indication: Product used for unknown indication
     Route: 065
     Dates: start: 20170509, end: 20221230
  64. ZOLEDRONIC ACID [Concomitant]
     Active Substance: ZOLEDRONIC ACID
     Route: 065
     Dates: start: 20170509, end: 20221230
  65. ZOLEDRONIC ACID [Concomitant]
     Active Substance: ZOLEDRONIC ACID
     Route: 065
     Dates: start: 20170509, end: 20221230
  66. ZOLEDRONIC ACID [Concomitant]
     Active Substance: ZOLEDRONIC ACID
     Route: 065
     Dates: start: 20170509, end: 20221230
  67. ZOLEDRONIC ACID [Concomitant]
     Active Substance: ZOLEDRONIC ACID
     Route: 065
     Dates: start: 20170509, end: 20221230
  68. ZOLEDRONIC ACID [Concomitant]
     Active Substance: ZOLEDRONIC ACID
     Route: 065
     Dates: start: 20170509, end: 20221230
  69. ZOLEDRONIC ACID [Concomitant]
     Active Substance: ZOLEDRONIC ACID
     Route: 065
     Dates: start: 20170509, end: 20221230
  70. CHOLECALCIFEROL [Concomitant]
     Active Substance: CHOLECALCIFEROL
     Indication: Product used for unknown indication
     Route: 065
     Dates: start: 20221230
  71. CHOLECALCIFEROL [Concomitant]
     Active Substance: CHOLECALCIFEROL
     Route: 065
     Dates: end: 20221230
  72. CHOLECALCIFEROL [Concomitant]
     Active Substance: CHOLECALCIFEROL
     Route: 065
     Dates: start: 20221230
  73. CHOLECALCIFEROL [Concomitant]
     Active Substance: CHOLECALCIFEROL
     Route: 065
     Dates: start: 20221230
  74. CHOLECALCIFEROL [Concomitant]
     Active Substance: CHOLECALCIFEROL
     Route: 065
     Dates: start: 20221230
  75. CHOLECALCIFEROL [Concomitant]
     Active Substance: CHOLECALCIFEROL
     Route: 065
     Dates: start: 20221230
  76. CHOLECALCIFEROL [Concomitant]
     Active Substance: CHOLECALCIFEROL
     Route: 065
     Dates: end: 20221230
  77. CHOLECALCIFEROL [Concomitant]
     Active Substance: CHOLECALCIFEROL
     Route: 065
     Dates: end: 20221230
  78. CHOLECALCIFEROL [Concomitant]
     Active Substance: CHOLECALCIFEROL
     Route: 065
     Dates: end: 20221230
  79. CHOLECALCIFEROL [Concomitant]
     Active Substance: CHOLECALCIFEROL
     Route: 065
     Dates: end: 20221230
  80. CHOLECALCIFEROL [Concomitant]
     Active Substance: CHOLECALCIFEROL
     Route: 065
     Dates: end: 20221230
  81. PREGABALIN [Concomitant]
     Active Substance: PREGABALIN
     Indication: Product used for unknown indication
     Route: 065
     Dates: start: 20221230
  82. IPRATROPIUM BROMIDE [Concomitant]
     Active Substance: IPRATROPIUM BROMIDE
     Indication: Product used for unknown indication
     Route: 065
     Dates: start: 20221230
  83. IPRATROPIUM BROMIDE [Concomitant]
     Active Substance: IPRATROPIUM BROMIDE
     Route: 065
     Dates: end: 20221230
  84. IPRATROPIUM BROMIDE [Concomitant]
     Active Substance: IPRATROPIUM BROMIDE
     Route: 065
     Dates: end: 20221230
  85. IPRATROPIUM BROMIDE [Concomitant]
     Active Substance: IPRATROPIUM BROMIDE
     Route: 065
     Dates: end: 20221230
  86. IPRATROPIUM BROMIDE [Concomitant]
     Active Substance: IPRATROPIUM BROMIDE
     Route: 065
     Dates: end: 20221230
  87. IPRATROPIUM BROMIDE [Concomitant]
     Active Substance: IPRATROPIUM BROMIDE
     Route: 065
     Dates: end: 20221230
  88. IPRATROPIUM BROMIDE [Concomitant]
     Active Substance: IPRATROPIUM BROMIDE
     Route: 065
     Dates: end: 20221230
  89. IPRATROPIUM BROMIDE [Concomitant]
     Active Substance: IPRATROPIUM BROMIDE
     Route: 065
     Dates: end: 20221230
  90. Baciderma [Concomitant]
     Indication: Product used for unknown indication
     Route: 065
     Dates: start: 20221230
  91. Baciderma [Concomitant]
     Route: 065
     Dates: end: 20221230
  92. Baciderma [Concomitant]
     Route: 065
     Dates: end: 20221230
  93. RAMIPRIL [Concomitant]
     Active Substance: RAMIPRIL
     Indication: Ejection fraction decreased
     Route: 065
     Dates: start: 20180308, end: 20221230
  94. RAMIPRIL [Concomitant]
     Active Substance: RAMIPRIL
     Route: 065
     Dates: start: 20180308, end: 20221230
  95. RAMIPRIL [Concomitant]
     Active Substance: RAMIPRIL
     Route: 065
     Dates: start: 20180308, end: 20221230
  96. AZITHROMYCIN [Concomitant]
     Active Substance: AZITHROMYCIN
     Indication: Product used for unknown indication
     Route: 065
  97. AZITHROMYCIN [Concomitant]
     Active Substance: AZITHROMYCIN
     Route: 065
  98. AZITHROMYCIN [Concomitant]
     Active Substance: AZITHROMYCIN
     Route: 065
  99. AZITHROMYCIN [Concomitant]
     Active Substance: AZITHROMYCIN
     Route: 065
  100. AZITHROMYCIN [Concomitant]
     Active Substance: AZITHROMYCIN
     Route: 065
  101. AZITHROMYCIN [Concomitant]
     Active Substance: AZITHROMYCIN
     Route: 065
  102. AZITHROMYCIN [Concomitant]
     Active Substance: AZITHROMYCIN
     Route: 065
  103. CALCIUM [Concomitant]
     Active Substance: CALCIUM
     Indication: Product used for unknown indication
     Route: 065
     Dates: start: 20170509, end: 20221230
  104. ACETAMINOPHEN [Concomitant]
     Active Substance: ACETAMINOPHEN
     Indication: Product used for unknown indication
     Route: 065
     Dates: start: 20221230
  105. ACETAMINOPHEN [Concomitant]
     Active Substance: ACETAMINOPHEN
     Route: 065
     Dates: end: 20221230
  106. ACETAMINOPHEN [Concomitant]
     Active Substance: ACETAMINOPHEN
     Route: 065
     Dates: end: 20221230
  107. LEVOCETIRIZINE [Concomitant]
     Active Substance: LEVOCETIRIZINE
     Indication: Product used for unknown indication
     Route: 065
  108. LEVOCETIRIZINE [Concomitant]
     Active Substance: LEVOCETIRIZINE
     Route: 065
  109. LEVOCETIRIZINE [Concomitant]
     Active Substance: LEVOCETIRIZINE
     Route: 065
  110. LEVOCETIRIZINE [Concomitant]
     Active Substance: LEVOCETIRIZINE
     Route: 065
  111. LEVOCETIRIZINE [Concomitant]
     Active Substance: LEVOCETIRIZINE
     Route: 065
  112. LEVOCETIRIZINE [Concomitant]
     Active Substance: LEVOCETIRIZINE
     Route: 065
  113. OXYCODONE [Concomitant]
     Active Substance: OXYCODONE
     Indication: Product used for unknown indication
     Route: 065
     Dates: start: 20221230
  114. OXYCODONE [Concomitant]
     Active Substance: OXYCODONE
     Route: 065
     Dates: start: 20221230
  115. OXYCODONE [Concomitant]
     Active Substance: OXYCODONE
     Route: 065
     Dates: start: 20221230
  116. OXYCODONE [Concomitant]
     Active Substance: OXYCODONE
     Route: 065
     Dates: start: 20170529, end: 20221230
  117. OXYCODONE [Concomitant]
     Active Substance: OXYCODONE
     Route: 065
     Dates: start: 20170529, end: 20221230
  118. OXYCODONE [Concomitant]
     Active Substance: OXYCODONE
     Route: 065
     Dates: start: 20170529, end: 20221230
  119. OXYCODONE [Concomitant]
     Active Substance: OXYCODONE
     Route: 065
     Dates: start: 20170529, end: 20221230
  120. OXYCODONE [Concomitant]
     Active Substance: OXYCODONE
     Route: 065
     Dates: start: 20170529, end: 20221230
  121. PREDNISONE [Concomitant]
     Active Substance: PREDNISONE
     Indication: Product used for unknown indication
     Route: 065
  122. CETIRIZINE HYDROCHLORIDE [Concomitant]
     Active Substance: CETIRIZINE HYDROCHLORIDE
     Indication: Ejection fraction decreased
     Route: 065
     Dates: start: 20221230
  123. Budesonido [Concomitant]
     Indication: Product used for unknown indication
     Route: 065
     Dates: start: 20221230
  124. LOPERAMIDE HYDROCHLORIDE [Concomitant]
     Active Substance: LOPERAMIDE HYDROCHLORIDE
     Indication: Product used for unknown indication
     Route: 065
     Dates: start: 20221230
  125. PYRIDOXINE [Concomitant]
     Active Substance: PYRIDOXINE
     Indication: Product used for unknown indication
     Route: 065
     Dates: start: 20221230
  126. Naloxona [Concomitant]
     Indication: Product used for unknown indication
     Route: 065
     Dates: start: 20221230
  127. NALOXONE HYDROCHLORIDE\OXYCODONE HYDROCHLORIDE [Concomitant]
     Active Substance: NALOXONE HYDROCHLORIDE\OXYCODONE HYDROCHLORIDE
     Indication: Product used for unknown indication
     Route: 065
     Dates: start: 20170529, end: 20221230
  128. BISOPROLOL [Concomitant]
     Active Substance: BISOPROLOL
     Indication: Product used for unknown indication
     Route: 065
     Dates: start: 20171129, end: 20221230
  129. BISOPROLOL [Concomitant]
     Active Substance: BISOPROLOL
     Route: 065
     Dates: start: 20221230
  130. BISOPROLOL [Concomitant]
     Active Substance: BISOPROLOL
     Route: 065
     Dates: start: 20171129, end: 20221230
  131. BISOPROLOL [Concomitant]
     Active Substance: BISOPROLOL
     Route: 065
     Dates: start: 20171129, end: 20221230
  132. CALCIUM CARBONATE [Concomitant]
     Active Substance: CALCIUM CARBONATE
     Indication: Product used for unknown indication
     Route: 065
     Dates: start: 20221230
  133. CALCIUM CARBONATE [Concomitant]
     Active Substance: CALCIUM CARBONATE
     Route: 065
     Dates: start: 20171129, end: 20221230
  134. CALCIUM CARBONATE [Concomitant]
     Active Substance: CALCIUM CARBONATE
     Route: 065
     Dates: end: 20221230
  135. CALCIUM CARBONATE [Concomitant]
     Active Substance: CALCIUM CARBONATE
     Route: 065
     Dates: end: 20221230
  136. CALCIUM CARBONATE [Concomitant]
     Active Substance: CALCIUM CARBONATE
     Route: 065
     Dates: end: 20221230
  137. CALCIUM CARBONATE [Concomitant]
     Active Substance: CALCIUM CARBONATE
     Route: 065
     Dates: end: 20221230
  138. CALCIUM CARBONATE [Concomitant]
     Active Substance: CALCIUM CARBONATE
     Route: 065
     Dates: end: 20221230
  139. CALCIUM CARBONATE [Concomitant]
     Active Substance: CALCIUM CARBONATE
     Route: 065
     Dates: end: 20221230
  140. CALCIUM CARBONATE [Concomitant]
     Active Substance: CALCIUM CARBONATE
     Route: 065
     Dates: end: 20221230
  141. CARBOPLATIN [Concomitant]
     Active Substance: CARBOPLATIN
     Indication: HER2 positive breast cancer
     Route: 065
     Dates: start: 20221214, end: 20221230
  142. ACETYLCYSTEINE [Concomitant]
     Active Substance: ACETYLCYSTEINE
     Indication: Product used for unknown indication
     Route: 065
     Dates: start: 20221230
  143. LOPERAMIDE [Concomitant]
     Active Substance: LOPERAMIDE
     Indication: Product used for unknown indication
     Route: 065
     Dates: start: 20221230
  144. LOPERAMIDE [Concomitant]
     Active Substance: LOPERAMIDE
     Route: 065
     Dates: end: 20221230
  145. LOPERAMIDE [Concomitant]
     Active Substance: LOPERAMIDE
     Route: 065
     Dates: end: 20221230
  146. LOPERAMIDE [Concomitant]
     Active Substance: LOPERAMIDE
     Route: 065
     Dates: end: 20221230
  147. LOPERAMIDE [Concomitant]
     Active Substance: LOPERAMIDE
     Route: 065
     Dates: end: 20221230
  148. LOPERAMIDE [Concomitant]
     Active Substance: LOPERAMIDE
     Route: 065
     Dates: end: 20221230
  149. LOPERAMIDE [Concomitant]
     Active Substance: LOPERAMIDE
     Route: 065
     Dates: end: 20221230
  150. PREDNISONE [Concomitant]
     Active Substance: PREDNISONE
     Indication: Product used for unknown indication
     Route: 065
  151. PREDNISONE [Concomitant]
     Active Substance: PREDNISONE
     Route: 065
  152. PREDNISONE [Concomitant]
     Active Substance: PREDNISONE
     Route: 065
  153. NALOXONE [Concomitant]
     Active Substance: NALOXONE
     Indication: Product used for unknown indication
     Route: 065
     Dates: start: 20221230
  154. CALCIUM\CHOLECALCIFEROL [Concomitant]
     Active Substance: CALCIUM\CHOLECALCIFEROL
     Indication: HER2 positive breast cancer
     Route: 065
     Dates: start: 20170509, end: 20221230
  155. CALCIUM\CHOLECALCIFEROL [Concomitant]
     Active Substance: CALCIUM\CHOLECALCIFEROL
     Route: 065
     Dates: start: 20180308, end: 20221230
  156. CALCIUM\CHOLECALCIFEROL [Concomitant]
     Active Substance: CALCIUM\CHOLECALCIFEROL
     Route: 065
     Dates: start: 20170509, end: 20221230
  157. CALCIUM\CHOLECALCIFEROL [Concomitant]
     Active Substance: CALCIUM\CHOLECALCIFEROL
     Route: 065
     Dates: start: 20170509, end: 20221230
  158. PYRIDOXINE [Concomitant]
     Active Substance: PYRIDOXINE
     Indication: Product used for unknown indication
     Route: 065
     Dates: start: 20221230
  159. PYRIDOXINE [Concomitant]
     Active Substance: PYRIDOXINE
     Indication: Product used for unknown indication
  160. METOCLOPRAMIDE [Concomitant]
     Active Substance: METOCLOPRAMIDE
     Indication: Product used for unknown indication
     Route: 065
     Dates: start: 20221230
  161. BUDESONIDE [Concomitant]
     Active Substance: BUDESONIDE
     Indication: Product used for unknown indication
     Route: 065
     Dates: start: 20221230
  162. ACETYLCYSTEINE [Concomitant]
     Active Substance: ACETYLCYSTEINE
     Indication: Product used for unknown indication
     Route: 065
     Dates: start: 20221230
  163. ACETYLCYSTEINE [Concomitant]
     Active Substance: ACETYLCYSTEINE
     Route: 058
     Dates: start: 20190117
  164. CETIRIZINE [Concomitant]
     Active Substance: CETIRIZINE HYDROCHLORIDE
     Indication: Product used for unknown indication
     Route: 065
     Dates: start: 20221230
  165. CETIRIZINE [Concomitant]
     Active Substance: CETIRIZINE HYDROCHLORIDE
     Route: 065
     Dates: start: 20221230
  166. CETIRIZINE [Concomitant]
     Active Substance: CETIRIZINE HYDROCHLORIDE
     Route: 065
     Dates: start: 20221230
  167. CETIRIZINE [Concomitant]
     Active Substance: CETIRIZINE HYDROCHLORIDE
     Route: 065
     Dates: end: 20221230
  168. CETIRIZINE [Concomitant]
     Active Substance: CETIRIZINE HYDROCHLORIDE
     Route: 065
     Dates: end: 20221230
  169. CETIRIZINE [Concomitant]
     Active Substance: CETIRIZINE HYDROCHLORIDE
     Route: 065
     Dates: end: 20221230
  170. CETIRIZINE [Concomitant]
     Active Substance: CETIRIZINE HYDROCHLORIDE
     Route: 065
     Dates: end: 20221230
  171. CETIRIZINE [Concomitant]
     Active Substance: CETIRIZINE HYDROCHLORIDE
     Route: 065
     Dates: end: 20221230
  172. CETIRIZINE [Concomitant]
     Active Substance: CETIRIZINE HYDROCHLORIDE
     Route: 065
     Dates: end: 20221230
  173. PREGABALIN [Concomitant]
     Active Substance: PREGABALIN
     Indication: Product used for unknown indication
     Route: 065
     Dates: start: 20221230
  174. PREGABALIN [Concomitant]
     Active Substance: PREGABALIN
     Route: 065
     Dates: end: 20221230
  175. PREGABALIN [Concomitant]
     Active Substance: PREGABALIN
     Route: 065
     Dates: end: 20221230
  176. PREGABALIN [Concomitant]
     Active Substance: PREGABALIN
     Route: 065
     Dates: end: 20221230
  177. PREGABALIN [Concomitant]
     Active Substance: PREGABALIN
     Route: 065
     Dates: end: 20221230
  178. PREGABALIN [Concomitant]
     Active Substance: PREGABALIN
     Route: 065
     Dates: end: 20221230
  179. PREGABALIN [Concomitant]
     Active Substance: PREGABALIN
     Route: 065
     Dates: end: 20221230
  180. PREGABALIN [Concomitant]
     Active Substance: PREGABALIN
     Route: 065
     Dates: end: 20221230
  181. FILGRASTIM [Concomitant]
     Active Substance: FILGRASTIM
     Indication: Product used for unknown indication
     Route: 065
     Dates: end: 20221230
  182. FILGRASTIM [Concomitant]
     Active Substance: FILGRASTIM
     Route: 065
     Dates: end: 20221230

REACTIONS (4)
  - Pancytopenia [Fatal]
  - Pneumonia [Fatal]
  - Febrile neutropenia [Fatal]
  - Pyrexia [Fatal]

NARRATIVE: CASE EVENT DATE: 20221227
